FAERS Safety Report 8925017 (Version 1)
Quarter: 2012Q4

REPORT INFORMATION
  Report Type: 
  Country: US (occurrence: US)
  Receive Date: 20121126
  Receipt Date: 20121126
  Transmission Date: 20130627
  Serious: Yes (Hospitalization, Disabling, Other)
  Sender: FDA-Public Use
  Company Number: US-ELI_LILLY_AND_COMPANY-US201211004449

PATIENT
  Age: 59 Year
  Sex: Female

DRUGS (10)
  1. HUMALOG LISPRO [Suspect]
     Indication: TYPE 2 DIABETES MELLITUS
     Dosage: 5 u, other
     Dates: start: 201209
  2. HUMALOG LISPRO [Suspect]
     Dosage: 30 u, bid
  3. HUMULIN 30% REGULAR, 70% NPH [Suspect]
     Indication: TYPE 2 DIABETES MELLITUS
     Dosage: UNK, unknown
  4. ASPIRIN [Concomitant]
     Dosage: 81 mg, unknown
  5. LORATADINE [Concomitant]
     Indication: NASAL SEPTUM DEVIATION
     Dosage: UNK, unknown
  6. MELOXICAM [Concomitant]
     Indication: OSTEOARTHRITIS
     Dosage: UNK, unknown
  7. LISINOPRIL [Concomitant]
     Indication: BLOOD PRESSURE INCREASED
     Dosage: UNK, unknown
  8. OMEPRAZOLE [Concomitant]
     Indication: GASTROOESOPHAGEAL REFLUX DISEASE
     Dosage: UNK, unknown
  9. SIMVASTATIN [Concomitant]
     Dosage: 10 mg, unknown
  10. LEVEMIR [Concomitant]
     Dosage: 30 u, bid

REACTIONS (13)
  - Myocardial infarction [Unknown]
  - Blindness [Not Recovered/Not Resolved]
  - Pain in extremity [Unknown]
  - Diabetes mellitus inadequate control [Unknown]
  - Muscle spasms [Unknown]
  - Movement disorder [Unknown]
  - Pain [Unknown]
  - Blood disorder [Unknown]
  - Cardiac enzymes increased [Unknown]
  - Glycosylated haemoglobin increased [Unknown]
  - Visual acuity reduced [Not Recovered/Not Resolved]
  - Drug ineffective [Unknown]
  - Incorrect dose administered [Unknown]
